FAERS Safety Report 10776139 (Version 1)
Quarter: 2015Q1

REPORT INFORMATION
  Report Type: Spontaneous
  Country: US (occurrence: US)
  Receive Date: 20150209
  Receipt Date: 20150209
  Transmission Date: 20150721
  Serious: No
  Sender: FDA-Public Use
  Company Number: US-GLAXOSMITHKLINE-A1079289A

PATIENT

DRUGS (1)
  1. BENLYSTA [Suspect]
     Active Substance: BELIMUMAB
     Indication: SYSTEMIC LUPUS ERYTHEMATOSUS
     Dosage: ONE DOSE PER WEEK FOR 3 WEEKS THEN MONTHLY
     Route: 042
     Dates: start: 201404

REACTIONS (5)
  - Migraine [Unknown]
  - Erythema [Unknown]
  - Headache [Unknown]
  - Flushing [Recovering/Resolving]
  - Feeling hot [Unknown]

NARRATIVE: CASE EVENT DATE: 201404
